FAERS Safety Report 4665825-6 (Version None)
Quarter: 2005Q2

REPORT INFORMATION
  Report Type: 
  Country: None (occurrence: None)
  Receive Date: 20050519
  Receipt Date: 20050309
  Transmission Date: 20051028
  Serious: No
  Sender: FDA-Public Use
  Company Number: US-GLAXOSMITHKLINE-A0549047A

PATIENT
  Age: 55 Year
  Sex: Female

DRUGS (8)
  1. AVODART [Suspect]
     Indication: HYPERTENSION
     Dosage: .5MG PER DAY
     Route: 048
     Dates: start: 20050129, end: 20050308
  2. ARTHROTEC [Concomitant]
  3. NEURONTIN [Concomitant]
  4. HYDROCHLOROTHIAZIDE [Concomitant]
  5. FOSAMAX [Concomitant]
  6. ASPIRIN [Concomitant]
  7. TYLENOL (CAPLET) [Concomitant]
  8. SYNTHROID [Concomitant]

REACTIONS (4)
  - BLOOD PRESSURE INCREASED [None]
  - DIZZINESS [None]
  - DYSPNOEA [None]
  - MEDICATION ERROR [None]
